FAERS Safety Report 7568486-1 (Version None)
Quarter: 2011Q2

REPORT INFORMATION
  Report Type: 
  Country: None (occurrence: None)
  Receive Date: 20110617
  Receipt Date: 20110601
  Transmission Date: 20111010
  Serious: Yes (Other)
  Sender: FDA-Public Use
  Company Number: TUK2011A00066

PATIENT
  Age: 74 Year
  Sex: Female

DRUGS (4)
  1. GLICLAZIDE GLICLAZIDE) [Concomitant]
  2. ACTOS [Suspect]
     Indication: DIABETES MELLITUS
     Dosage: 15 MG, ORAL
     Route: 048
     Dates: start: 20110304, end: 20110401
  3. RAMIPRIL [Concomitant]
  4. AMITRIPTYLINE HCL [Concomitant]

REACTIONS (5)
  - ARTHRALGIA [None]
  - DIZZINESS [None]
  - HYPOAESTHESIA [None]
  - DYSPNOEA [None]
  - OEDEMA [None]
